FAERS Safety Report 23780295 (Version 2)
Quarter: 2024Q2

REPORT INFORMATION
  Report Type: Spontaneous
  Country: US (occurrence: US)
  Receive Date: 20240424
  Receipt Date: 20240426
  Transmission Date: 20240716
  Serious: No
  Sender: FDA-Public Use
  Company Number: US-ABBVIE-5732095

PATIENT
  Sex: Female

DRUGS (1)
  1. BOTOX COSMETIC [Suspect]
     Active Substance: ONABOTULINUMTOXINA
     Indication: Product used for unknown indication
     Dosage: TIME INTERVAL: AS NECESSARY: DURATION TEXT WAS FOUR PLUS YEARS
     Route: 065
     Dates: start: 2015, end: 2015

REACTIONS (3)
  - Injection site pain [Unknown]
  - Pain [Not Recovered/Not Resolved]
  - Discomfort [Unknown]
